FAERS Safety Report 22196821 (Version 1)
Quarter: 2023Q2

REPORT INFORMATION
  Report Type: Spontaneous
  Country: US (occurrence: None)
  Receive Date: 20230410
  Receipt Date: 20230410
  Transmission Date: 20230722
  Serious: Yes (Hospitalization)
  Sender: FDA-Public Use
  Company Number: None

PATIENT
  Age: 74 Year
  Sex: Female

DRUGS (1)
  1. ENSPRYNG [Suspect]
     Active Substance: SATRALIZUMAB-MWGE
     Indication: Neuromyelitis optica spectrum disorder
     Dosage: FREQUENCY : MONTHLY;?
     Route: 058
     Dates: start: 20220901, end: 20230130

REACTIONS (3)
  - Pancreatitis [None]
  - Abdominal abscess [None]
  - Peripancreatic fluid collection [None]

NARRATIVE: CASE EVENT DATE: 20230206
